FAERS Safety Report 9697381 (Version 1)
Quarter: 2013Q4

REPORT INFORMATION
  Report Type: Spontaneous
  Country: US (occurrence: None)
  Receive Date: 20131119
  Receipt Date: 20131119
  Transmission Date: 20140711
  Serious: No
  Sender: FDA-Public Use
  Company Number: None

PATIENT
  Age: 41 Year
  Sex: Female

DRUGS (1)
  1. HUMIRA [Suspect]
     Indication: PSORIASIS
     Dosage: 2 PENS DAYS 1, 1 PEN ONE WEEK
     Route: 058
     Dates: start: 20131015, end: 20131105

REACTIONS (4)
  - Diarrhoea [None]
  - Nausea [None]
  - Lethargy [None]
  - Hypoaesthesia [None]
